FAERS Safety Report 16198003 (Version 1)
Quarter: 2019Q2

REPORT INFORMATION
  Report Type: Spontaneous
  Country: US (occurrence: US)
  Receive Date: 20190312
  Receipt Date: 20190312
  Transmission Date: 20190711
  Serious: Yes (Hospitalization)
  Sender: FDA-Public Use
  Company Number: None

PATIENT
  Age: 14 Year
  Sex: Female

DRUGS (8)
  1. CYPROPEPTADINE [Concomitant]
  2. TOBRAMYCIN. [Suspect]
     Active Substance: TOBRAMYCIN
     Indication: CYSTIC FIBROSIS
     Dosage: 300MG/ 5 ML
     Route: 055
     Dates: start: 20140917
  3. MVW [Concomitant]
  4. CAYAYON [Concomitant]
  5. VITAMIND3 [Concomitant]
  6. FLUTICASONE. [Concomitant]
     Active Substance: FLUTICASONE
  7. ZENPEP [Concomitant]
     Active Substance: PANCRELIPASE AMYLASE\PANCRELIPASE LIPASE\PANCRELIPASE PROTEASE
  8. SYMDEKO [Suspect]
     Active Substance: IVACAFTOR\TEZACAFTOR
     Indication: CYSTIC FIBROSIS
     Dosage: 100 MG EVERY AM AND 150 MG QPM ORAL
     Route: 048
     Dates: start: 20180727

REACTIONS (1)
  - Disease complication [None]

NARRATIVE: CASE EVENT DATE: 20190227
